FAERS Safety Report 5827351-8 (Version None)
Quarter: 2008Q3

REPORT INFORMATION
  Report Type: 
  Country: None (occurrence: None)
  Receive Date: 20080730
  Receipt Date: 20080722
  Transmission Date: 20090109
  Serious: Yes (Death, Other)
  Sender: FDA-Public Use
  Company Number: US-AMGEN-QUU296559

PATIENT
  Sex: Female

DRUGS (2)
  1. ENBREL [Suspect]
     Indication: RHEUMATOID ARTHRITIS
     Route: 058
     Dates: end: 20080519
  2. METHOTREXATE [Concomitant]

REACTIONS (4)
  - ASPHYXIA [None]
  - CONVULSION [None]
  - PNEUMONIA ASPIRATION [None]
  - VENTRICULAR HYPERTROPHY [None]
